FAERS Safety Report 5757759-0 (Version None)
Quarter: 2008Q2

REPORT INFORMATION
  Report Type: 
  Country: None (occurrence: None)
  Receive Date: 20080529
  Receipt Date: 20080123
  Transmission Date: 20081010
  Serious: Yes (Other)
  Sender: FDA-Public Use
  Company Number: 001#1#2008-00055

PATIENT
  Age: 41 Year
  Sex: Male

DRUGS (2)
  1. ALPROSTADIL [Suspect]
     Indication: ULCER
     Dosage: 3 DF
     Dates: start: 20080108, end: 20080122
  2. ALPROSTADIL [Suspect]
     Indication: VASCULITIS
     Dosage: 3 DF
     Dates: start: 20080108, end: 20080122

REACTIONS (1)
  - FALL [None]
